FAERS Safety Report 19799309 (Version 1)
Quarter: 2021Q3

REPORT INFORMATION
  Report Type: Report from Study
  Country: US (occurrence: US)
  Receive Date: 20210907
  Receipt Date: 20210907
  Transmission Date: 20211014
  Serious: Yes (Hospitalization, Other)
  Sender: FDA-Public Use
  Company Number: US-TAKEDA-2021TUS035411

PATIENT
  Sex: Male
  Weight: 175 kg

DRUGS (9)
  1. EPINEPHRINE. [Concomitant]
     Active Substance: EPINEPHRINE
  2. HEPARIN [Concomitant]
     Active Substance: HEPARIN SODIUM
  3. CELLCEPT [Concomitant]
     Active Substance: MYCOPHENOLATE MOFETIL\MYCOPHENOLATE MOFETIL HYDROCHLORIDE
  4. SODIUM CHLORIDE. [Concomitant]
     Active Substance: SODIUM CHLORIDE
  5. ACETAMINOPHEN. [Concomitant]
     Active Substance: ACETAMINOPHEN
  6. DIPHENHYDRAMINE. [Concomitant]
     Active Substance: DIPHENHYDRAMINE
  7. LASIX [Concomitant]
     Active Substance: FUROSEMIDE
  8. HUMAN NORMAL IMMUNOGLOBULIN; LIQUID [Suspect]
     Active Substance: HUMAN IMMUNOGLOBULIN G
     Indication: POLYMYOSITIS
     Dosage: 180 GRAM, Q4WEEKS
     Route: 042
     Dates: start: 20210520
  9. LIDOCAINE. [Concomitant]
     Active Substance: LIDOCAINE

REACTIONS (8)
  - Body temperature increased [Unknown]
  - Eating disorder [Unknown]
  - Off label use [Unknown]
  - Fatigue [Unknown]
  - Pain in extremity [Unknown]
  - Chills [Unknown]
  - Incorrect drug administration rate [Unknown]
  - Pneumonia [Unknown]
